FAERS Safety Report 10146808 (Version 1)
Quarter: 2014Q2

REPORT INFORMATION
  Report Type: Spontaneous
  Country: GB (occurrence: None)
  Receive Date: 20140429
  Receipt Date: 20140429
  Transmission Date: 20141212
  Serious: Yes (Other)
  Sender: FDA-Public Use
  Company Number: AUR-APL-2014-05052

PATIENT
  Age: 72 Year
  Sex: Female
  Weight: 77 kg

DRUGS (4)
  1. PRAVASTATIN (PRAVASTATIN) [Suspect]
     Indication: HYPERCHOLESTEROLAEMIA
     Route: 048
     Dates: start: 2012, end: 2012
  2. SIMVASTATIN (SIMVASTATIN) [Suspect]
     Indication: HYPERCHOLESTEROLAEMIA
     Route: 048
     Dates: start: 2012, end: 2012
  3. AMLODIPINE (AMLODIPINE) [Concomitant]
  4. OMEPRAZOLE (OMEPRAZOLE) [Concomitant]

REACTIONS (3)
  - Depression [None]
  - Myalgia [None]
  - Quality of life decreased [None]
